FAERS Safety Report 4342334-5 (Version None)
Quarter: 2004Q2

REPORT INFORMATION
  Report Type: 
  Country: None (occurrence: None)
  Receive Date: 20040416
  Receipt Date: 20040409
  Transmission Date: 20050107
  Serious: No
  Sender: FDA-Public Use
  Company Number: 2004UW07245

PATIENT
  Age: 8 Year
  Sex: Female
  Weight: 48.9885 kg

DRUGS (1)
  1. PULMICORT RESPULES [Suspect]
     Dosage: 0.5 MG; IH
     Route: 055

REACTIONS (1)
  - CUSHING'S SYNDROME [None]
